FAERS Safety Report 4696900-8 (Version None)
Quarter: 2005Q2

REPORT INFORMATION
  Report Type: 
  Country: None (occurrence: None)
  Receive Date: 20050622
  Receipt Date: 20050613
  Transmission Date: 20051028
  Serious: Yes (Hospitalization)
  Sender: FDA-Public Use
  Company Number: US-JNJFOC-20050604018

PATIENT
  Sex: Female

DRUGS (3)
  1. DURAGESIC-100 [Suspect]
     Route: 062
     Dates: start: 20040101
  2. DURAGESIC-100 [Suspect]
     Route: 062
     Dates: start: 20040101
  3. DURAGESIC-100 [Suspect]
     Route: 062
     Dates: start: 20040101

REACTIONS (6)
  - APPLICATION SITE PRURITUS [None]
  - CROHN'S DISEASE [None]
  - DEVICE FAILURE [None]
  - EMOTIONAL DISORDER [None]
  - INCOHERENT [None]
  - PHARMACEUTICAL PRODUCT COMPLAINT [None]
